FAERS Safety Report 16351336 (Version 2)
Quarter: 2019Q2

REPORT INFORMATION
  Report Type: Spontaneous
  Country: IT (occurrence: IT)
  Receive Date: 20190524
  Receipt Date: 20190607
  Transmission Date: 20190711
  Serious: Yes (Hospitalization, Other)
  Sender: FDA-Public Use
  Company Number: PHHY2019IT115877

PATIENT
  Age: 11 Year
  Sex: Female
  Weight: 28 kg

DRUGS (10)
  1. ACICLOVIR [Suspect]
     Active Substance: ACYCLOVIR
     Indication: LEUKOPENIA
  2. PREDNISONE. [Concomitant]
     Active Substance: PREDNISONE
     Indication: IMMUNOSUPPRESSANT DRUG THERAPY
     Route: 065
  3. AMIKACIN. [Suspect]
     Active Substance: AMIKACIN
     Indication: LEUKOPENIA
     Dosage: 18 MG/KG, QD IN 1 DOSES SINCE DAY +4 TO +8
     Route: 042
  4. CICLOSPORIN [Concomitant]
     Active Substance: CYCLOSPORINE
     Indication: IMMUNOSUPPRESSANT DRUG THERAPY
     Route: 065
  5. CICLOSPORIN [Concomitant]
     Active Substance: CYCLOSPORINE
  6. ACICLOVIR [Suspect]
     Active Substance: ACYCLOVIR
     Indication: MUCOSAL INFLAMMATION
     Dosage: 59 MG/KG, QD  IN 3 DOSES SINCE DAY -5 TO +14
     Route: 042
  7. VANCOMYCIN [Suspect]
     Active Substance: VANCOMYCIN
     Indication: MUCOSAL INFLAMMATION
  8. VANCOMYCIN [Suspect]
     Active Substance: VANCOMYCIN
     Indication: LEUKOPENIA
     Dosage: 30 MG/KG, QD  IN 3 DOSES SINCE DAY +4 TO +19
     Route: 042
  9. PREDNISONE. [Concomitant]
     Active Substance: PREDNISONE
  10. AMIKACIN. [Suspect]
     Active Substance: AMIKACIN
     Indication: MUCOSAL INFLAMMATION

REACTIONS (2)
  - Oliguria [Recovering/Resolving]
  - Acute kidney injury [Recovering/Resolving]
